FAERS Safety Report 19134543 (Version 1)
Quarter: 2021Q2

REPORT INFORMATION
  Report Type: Spontaneous
  Country: CH (occurrence: CH)
  Receive Date: 20210414
  Receipt Date: 20210414
  Transmission Date: 20210717
  Serious: Yes (Other)
  Sender: FDA-Public Use
  Company Number: CH-PFIZER INC-2021386111

PATIENT
  Age: 57 Year
  Sex: Male

DRUGS (2)
  1. CYTARABINE. [Suspect]
     Active Substance: CYTARABINE
     Indication: ACUTE MYELOMONOCYTIC LEUKAEMIA
     Dosage: UNK
     Dates: start: 199003
  2. MITOXANTRONE HCL [Suspect]
     Active Substance: MITOXANTRONE HYDROCHLORIDE
     Indication: ACUTE MYELOMONOCYTIC LEUKAEMIA
     Dosage: UNK, CYCLIC
     Dates: start: 199003

REACTIONS (1)
  - Hidradenitis [Recovered/Resolved]

NARRATIVE: CASE EVENT DATE: 199003
